FAERS Safety Report 12587543 (Version 4)
Quarter: 2016Q3

REPORT INFORMATION
  Report Type: Report from Study
  Country: CO (occurrence: CO)
  Receive Date: 20160725
  Receipt Date: 20160823
  Transmission Date: 20161109
  Serious: Yes (Other)
  Sender: FDA-Public Use
  Company Number: CO-ROCHE-1801273

PATIENT
  Sex: Female

DRUGS (1)
  1. BEVACIZUMAB [Suspect]
     Active Substance: BEVACIZUMAB
     Indication: GLIOBLASTOMA MULTIFORME
     Route: 042
     Dates: start: 20160223

REACTIONS (4)
  - Back pain [Recovering/Resolving]
  - Arthralgia [Recovering/Resolving]
  - Visual acuity reduced [Unknown]
  - Gingival bleeding [Recovering/Resolving]
